FAERS Safety Report 11070124 (Version 5)
Quarter: 2015Q2

REPORT INFORMATION
  Report Type: Report from Study
  Country: LT (occurrence: LT)
  Receive Date: 20150427
  Receipt Date: 20150625
  Transmission Date: 20150821
  Serious: Yes (Hospitalization)
  Sender: FDA-Public Use
  Company Number: LT-MERCK-1504LTU020140

PATIENT
  Age: 35 Year
  Sex: Male
  Weight: 84.5 kg

DRUGS (9)
  1. IBUPROFEN. [Concomitant]
     Active Substance: IBUPROFEN
     Indication: PYREXIA
     Dosage: 400 MG, ONCE
     Route: 048
     Dates: start: 20150407, end: 20150407
  2. ACETAMINOPHEN. [Concomitant]
     Active Substance: ACETAMINOPHEN
     Dosage: 500 MG, BID
     Route: 048
     Dates: start: 20150414, end: 20150414
  3. RIBAVIRIN. [Suspect]
     Active Substance: RIBAVIRIN
     Indication: HEPATITIS C
     Dosage: DOSE: 6 CAPSULES, UNK
     Route: 048
     Dates: start: 20150407, end: 20150407
  4. RIBAVIRIN. [Suspect]
     Active Substance: RIBAVIRIN
     Dosage: DOSE: 5 CAPSULES, UNK
     Route: 048
     Dates: start: 20150421, end: 20150421
  5. PEGINTERFERON ALFA-2B [Suspect]
     Active Substance: PEGINTERFERON ALFA-2B
     Indication: HEPATITIS C
     Dosage: 0.5 ML (120 MCG PER 0.5 ML), 1 TIME PER WEEK
     Route: 058
     Dates: start: 20150407, end: 20150407
  6. ACETAMINOPHEN. [Concomitant]
     Active Substance: ACETAMINOPHEN
     Indication: PYREXIA
     Dosage: 500 MG, BID
     Route: 048
     Dates: start: 20150407, end: 20150407
  7. IBUPROFEN. [Concomitant]
     Active Substance: IBUPROFEN
     Indication: PYREXIA
     Dosage: 800 MG, BID
     Route: 048
     Dates: start: 20150414, end: 20150420
  8. SOFOSBUVIR [Suspect]
     Active Substance: SOFOSBUVIR
     Indication: HEPATITIS C
     Dosage: 1 TABLET, QD
     Route: 048
     Dates: start: 20150407, end: 20150407
  9. RIBAVIRIN. [Suspect]
     Active Substance: RIBAVIRIN
     Dosage: DOSE: 4 CAPSULES, UNK
     Route: 048
     Dates: start: 20150420, end: 20150420

REACTIONS (2)
  - Proctitis infectious [Recovered/Resolved]
  - Proctitis [Recovered/Resolved]

NARRATIVE: CASE EVENT DATE: 20150416
